FAERS Safety Report 21371098 (Version 1)
Quarter: 2022Q3

REPORT INFORMATION
  Report Type: Spontaneous
  Country: US (occurrence: US)
  Receive Date: 20220923
  Receipt Date: 20220923
  Transmission Date: 20221027
  Serious: Yes (Death, Life-Threatening, Other)
  Sender: FDA-Public Use
  Company Number: US-drreddys-LIT/USA/22/0154695

PATIENT
  Sex: Male

DRUGS (6)
  1. AZACITIDINE [Suspect]
     Active Substance: AZACITIDINE
     Indication: Monocytosis
  2. DECITABINE [Suspect]
     Active Substance: DECITABINE
     Indication: Monocytosis
  3. GEMTUZUMAB OZOGAMICIN [Suspect]
     Active Substance: GEMTUZUMAB OZOGAMICIN
     Indication: Monocytosis
  4. CYTARABINE [Suspect]
     Active Substance: CYTARABINE
     Indication: Monocytosis
  5. DAUNORUBICIN [Suspect]
     Active Substance: DAUNORUBICIN
     Indication: Monocytosis
  6. ETOPOSIDE [Suspect]
     Active Substance: ETOPOSIDE
     Indication: Monocytosis

REACTIONS (6)
  - Respiratory failure [Fatal]
  - Drug ineffective for unapproved indication [Unknown]
  - Disease progression [Unknown]
  - Acute lymphocytic leukaemia [Unknown]
  - Lung infiltration [Unknown]
  - Splenomegaly [Unknown]
